FAERS Safety Report 20695217 (Version 2)
Quarter: 2022Q3

REPORT INFORMATION
  Report Type: Report from Study
  Country: JP (occurrence: JP)
  Receive Date: 20220411
  Receipt Date: 20220705
  Transmission Date: 20221027
  Serious: Yes (Death, Other)
  Sender: FDA-Public Use
  Company Number: JP-RECORDATI RARE DISEASE INC.-2022001346

PATIENT
  Age: 0 Year
  Sex: Male
  Weight: .224 kg

DRUGS (14)
  1. NEOPROFEN [Suspect]
     Active Substance: IBUPROFEN LYSINE
     Indication: Patent ductus arteriosus
     Dosage: 2.25 MILLIGRAM
     Route: 042
     Dates: start: 20210128, end: 20210128
  2. PHENOBARBITAL SODIUM [Concomitant]
     Active Substance: PHENOBARBITAL SODIUM
     Indication: Sedation
     Dosage: UNK
     Route: 042
     Dates: start: 20210127, end: 20210128
  3. VICCILLIN [AMPICILLIN SODIUM] [Concomitant]
     Indication: Infection prophylaxis
     Dosage: UNK
     Route: 042
     Dates: start: 20210127, end: 20210203
  4. GENTAMICIN [Concomitant]
     Active Substance: GENTAMICIN
     Indication: Infection prophylaxis
     Dosage: UNK
     Route: 042
     Dates: start: 20210127, end: 20210203
  5. FLUCONAZOLE [Concomitant]
     Active Substance: FLUCONAZOLE
     Indication: Infection prophylaxis
     Dosage: UNK
     Route: 042
     Dates: start: 20210127, end: 20210217
  6. INOVAN [DOPAMINE HYDROCHLORIDE] [Concomitant]
     Indication: Low birth weight baby
     Dosage: UNK
     Route: 042
     Dates: start: 20210127, end: 20210225
  7. DOBUTREX [Concomitant]
     Active Substance: DOBUTAMINE HYDROCHLORIDE
     Indication: Low birth weight baby
     Dosage: UNK
     Route: 042
     Dates: start: 20210127, end: 20210223
  8. PLEAMIN P [Concomitant]
     Indication: Nutritional supplementation
     Dosage: UNK
     Route: 042
     Dates: start: 20210127, end: 20210302
  9. CALCIUM GLUCONATE [Concomitant]
     Active Substance: CALCIUM GLUCONATE
     Indication: Electrolyte imbalance
     Dosage: UNK
     Route: 042
     Dates: start: 20210127, end: 20210501
  10. SODIUM PHOSPHATE [Concomitant]
     Active Substance: SODIUM PHOSPHATE
     Indication: Electrolyte imbalance
     Dosage: UNK
     Route: 042
     Dates: start: 20210128, end: 20210501
  11. OTSUKA MV [Concomitant]
     Indication: Vitamin supplementation
     Dosage: UNK
     Route: 042
     Dates: start: 20210127, end: 20210501
  12. KCL [Concomitant]
     Active Substance: POTASSIUM CHLORIDE
     Indication: Electrolyte imbalance
     Dosage: UNK
     Route: 042
     Dates: start: 20210128, end: 20210501
  13. MEYLON [Concomitant]
     Active Substance: SODIUM BICARBONATE
     Indication: Metabolic acidosis
     Dosage: UNK
     Route: 042
     Dates: start: 20210128, end: 20210128
  14. FILGRASTIM [Concomitant]
     Active Substance: FILGRASTIM
     Indication: Neutropenia
     Dosage: UNK
     Route: 042
     Dates: start: 20210128, end: 20210131

REACTIONS (2)
  - Necrotising colitis [Fatal]
  - Meconium ileus [Recovered/Resolved with Sequelae]

NARRATIVE: CASE EVENT DATE: 20210129
